FAERS Safety Report 11716528 (Version 2)
Quarter: 2015Q4

REPORT INFORMATION
  Report Type: Spontaneous
  Country: FR (occurrence: FR)
  Receive Date: 20151109
  Receipt Date: 20151109
  Transmission Date: 20160304
  Serious: Yes (Death)
  Sender: FDA-Public Use
  Company Number: FR-BAYER-2015-453812

PATIENT
  Age: 29 Year
  Sex: Male

DRUGS (2)
  1. CIFLOX [Suspect]
     Active Substance: CIPROFLOXACIN
     Indication: URINARY TRACT INFECTION
     Dosage: UNK
     Route: 048
     Dates: start: 20080608
  2. PARACETAMOL [Suspect]
     Active Substance: ACETAMINOPHEN
     Indication: PYREXIA
     Dosage: DAILY DOSE 3 G
     Route: 048
     Dates: start: 20080607, end: 20080609

REACTIONS (2)
  - Hepatitis fulminant [Fatal]
  - Liver transplant [Fatal]

NARRATIVE: CASE EVENT DATE: 20080609
